FAERS Safety Report 23104896 (Version 1)
Quarter: 2023Q4

REPORT INFORMATION
  Report Type: Spontaneous
  Country: US (occurrence: None)
  Receive Date: 20231024
  Receipt Date: 20231024
  Transmission Date: 20240109
  Serious: No
  Sender: FDA-Public Use
  Company Number: None

PATIENT
  Age: 68 Year
  Sex: Male

DRUGS (1)
  1. AXICABTAGENE CILOLEUCEL [Suspect]
     Active Substance: AXICABTAGENE CILOLEUCEL
     Dates: start: 20230509

REACTIONS (5)
  - Cytokine release syndrome [None]
  - Hypoxia [None]
  - Neurotoxicity [None]
  - Agitation [None]
  - Treatment noncompliance [None]
